FAERS Safety Report 24167000 (Version 1)
Quarter: 2024Q3

REPORT INFORMATION
  Report Type: Spontaneous
  Country: TW (occurrence: TW)
  Receive Date: 20240802
  Receipt Date: 20240802
  Transmission Date: 20241017
  Serious: Yes (Other)
  Sender: MYLAN
  Company Number: TW-MYLANLABS-2024M1071146

PATIENT
  Age: 71 Year
  Sex: Male

DRUGS (8)
  1. DOCETAXEL [Suspect]
     Active Substance: DOCETAXEL\DOCETAXEL ANHYDROUS
     Indication: Laryngeal cancer stage IV
     Dosage: UNK UNK, Q3W
     Route: 065
  2. DOCETAXEL [Suspect]
     Active Substance: DOCETAXEL\DOCETAXEL ANHYDROUS
     Indication: Metastatic squamous cell carcinoma
  3. CISPLATIN [Suspect]
     Active Substance: CISPLATIN
     Indication: Laryngeal cancer stage IV
     Dosage: UNK, Q3W
     Route: 065
  4. CISPLATIN [Suspect]
     Active Substance: CISPLATIN
     Indication: Metastatic squamous cell carcinoma
     Dosage: UNK
     Route: 065
  5. FLUOROURACIL [Suspect]
     Active Substance: FLUOROURACIL
     Indication: Laryngeal cancer stage IV
     Dosage: UNK, Q3W
     Route: 065
  6. FLUOROURACIL [Suspect]
     Active Substance: FLUOROURACIL
     Indication: Metastatic squamous cell carcinoma
     Dosage: UNK
     Route: 065
  7. HYDROXYUREA [Suspect]
     Active Substance: HYDROXYUREA
     Indication: Laryngeal cancer stage IV
     Dosage: UNK
     Route: 065
  8. HYDROXYUREA [Suspect]
     Active Substance: HYDROXYUREA
     Indication: Metastatic squamous cell carcinoma

REACTIONS (2)
  - Drug ineffective [Unknown]
  - Disease progression [Unknown]
